FAERS Safety Report 5656119-0 (Version None)
Quarter: 2008Q1

REPORT INFORMATION
  Report Type: 
  Country: None (occurrence: None)
  Receive Date: 20080305
  Receipt Date: 20080219
  Transmission Date: 20080703
  Serious: Yes (Hospitalization)
  Sender: FDA-Public Use
  Company Number: 2008PV034297

PATIENT
  Sex: Female
  Weight: 90.7194 kg

DRUGS (5)
  1. SYMLIN [Suspect]
     Indication: TYPE 2 DIABETES MELLITUS
     Dosage: 180 MCG; TID; SC
     Route: 058
     Dates: start: 20060101, end: 20060101
  2. SYMLIN [Suspect]
     Indication: TYPE 2 DIABETES MELLITUS
     Dosage: 180 MCG; TID; SC
     Route: 058
     Dates: start: 20061001
  3. METFORMIN HCL [Concomitant]
  4. CARDIAC THERAPY [Concomitant]
  5. SULFASALAZINE [Concomitant]

REACTIONS (5)
  - ANOREXIA [None]
  - CALCINOSIS [None]
  - GASTRIC DISORDER [None]
  - VAGINAL OPERATION [None]
  - VOMITING [None]
